FAERS Safety Report 4394206-8 (Version None)
Quarter: 2004Q3

REPORT INFORMATION
  Report Type: 
  Country: None (occurrence: None)
  Receive Date: 20040706
  Receipt Date: 20040624
  Transmission Date: 20050211
  Serious: Yes (Disabling)
  Sender: FDA-Public Use
  Company Number: A0339060A

PATIENT
  Age: 13 Year
  Sex: Female
  Weight: 50.6668 kg

DRUGS (17)
  1. PAXIL [Suspect]
     Indication: GENERALISED ANXIETY DISORDER
     Dosage: SEE DOSAGE TEXT / ORAL
     Route: 048
     Dates: start: 19990812, end: 20000901
  2. CITALOPRAM HYDROBROMIDE       (CITALOPRAM HYDROBROMIDE) [Suspect]
     Indication: GENERALISED ANXIETY DISORDER
     Dosage: ORAL
     Route: 048
     Dates: start: 20000901, end: 20000901
  3. PAXIL [Suspect]
     Dosage: SEE DOSAGE TEXT / ORAL
     Route: 048
     Dates: start: 20001101
  4. ALPRAZOLAM [Concomitant]
  5. LORAZEPAM [Concomitant]
  6. CLONAZEPAM [Concomitant]
  7. NEOSPORIN [Concomitant]
  8. IBUPROFEN [Concomitant]
  9. CELECOXIB [Concomitant]
  10. MOMETASONE FUROATE [Concomitant]
  11. BEXTRA [Concomitant]
  12. DIPHENHYDRAMINE HCL [Concomitant]
  13. FEXOFENADINE HYDROCHLORID [Concomitant]
  14. MOMETASONE FUROATE [Concomitant]
  15. AZELASTINE HCL [Concomitant]
  16. AMOX.TRIHYD+POT.CLAVULAN [Concomitant]
  17. DESLORATADINE [Concomitant]

REACTIONS (17)
  - ABDOMINAL PAIN UPPER [None]
  - ACTIVITIES OF DAILY LIVING IMPAIRED [None]
  - DRUG DEPENDENCE [None]
  - DRUG INEFFECTIVE [None]
  - DRUG WITHDRAWAL SYNDROME [None]
  - EDUCATIONAL PROBLEM [None]
  - EYE MOVEMENT DISORDER [None]
  - FAMILY STRESS [None]
  - FEAR [None]
  - HEART RATE INCREASED [None]
  - INSOMNIA [None]
  - MARKEDLY REDUCED DIETARY INTAKE [None]
  - NAUSEA [None]
  - PANIC ATTACK [None]
  - SUICIDAL IDEATION [None]
  - VOMITING [None]
  - WEIGHT DECREASED [None]
